FAERS Safety Report 5495967-7 (Version None)
Quarter: 2007Q4

REPORT INFORMATION
  Report Type: 
  Country: None (occurrence: None)
  Receive Date: 20071025
  Receipt Date: 20070104
  Transmission Date: 20080405
  Serious: No
  Sender: FDA-Public Use
  Company Number: A0634112A

PATIENT
  Age: 60 Year
  Sex: Female

DRUGS (4)
  1. ADVAIR DISKUS 100/50 [Suspect]
     Indication: ASTHMA
     Dosage: 2PUFF TWICE PER DAY
     Route: 055
     Dates: start: 20041201
  2. ACIPHEX [Concomitant]
  3. SYNTHROID [Concomitant]
  4. VITAMINS [Concomitant]

REACTIONS (1)
  - RETINAL DISORDER [None]
